FAERS Safety Report 26200218 (Version 1)
Quarter: 2025Q4

REPORT INFORMATION
  Report Type: Spontaneous
  Country: ZA (occurrence: ZA)
  Receive Date: 20251225
  Receipt Date: 20251225
  Transmission Date: 20260117
  Serious: Yes (Life-Threatening, Hospitalization, Other)
  Sender: CIPLA
  Company Number: ZA-MLMSERVICE-20251204-PI739070-00050-1

PATIENT

DRUGS (3)
  1. AMLODIPINE [Suspect]
     Active Substance: AMLODIPINE BESYLATE
     Dosage: 240 MILLIGRAM, TOTAL, INGESTING, FORMULATION: PILL
     Route: 048
  2. SIMVASTATIN [Suspect]
     Active Substance: SIMVASTATIN
     Dosage: 240 MILLIGRAM, TOTAL, INGESTING, FORMULATION: PILL
     Route: 048
  3. ENALAPRIL [Suspect]
     Active Substance: ENALAPRIL
     Dosage: 240 MILLIGRAM, TOTAL, INGESTING, FORMULATION: PILL
     Route: 048

REACTIONS (7)
  - Acute kidney injury [Recovered/Resolved]
  - Respiratory failure [Recovered/Resolved]
  - Generalised tonic-clonic seizure [Recovered/Resolved]
  - Hypoglycaemia [Recovered/Resolved]
  - Vasoplegia syndrome [Recovered/Resolved]
  - Multiple organ dysfunction syndrome [Recovered/Resolved]
  - Intentional overdose [Unknown]
